FAERS Safety Report 5469144-X (Version None)
Quarter: 2007Q3

REPORT INFORMATION
  Report Type: 
  Country: None (occurrence: None)
  Receive Date: 20070927
  Receipt Date: 20070919
  Transmission Date: 20080115
  Serious: Yes (Hospitalization)
  Sender: FDA-Public Use
  Company Number: PHRM2007FR02217

PATIENT
  Age: 73 Year
  Sex: Female
  Weight: 54 kg

DRUGS (2)
  1. EXJADE [Suspect]
     Dosage: 500 MG, QD
     Route: 048
     Dates: start: 20070201, end: 20070624
  2. BLOOD CELLS, PACKED HUMAN [Concomitant]
     Indication: REFRACTORY ANAEMIA
     Dosage: 1 DF, BIW
     Route: 042

REACTIONS (11)
  - ALANINE AMINOTRANSFERASE INCREASED [None]
  - ASPARTATE AMINOTRANSFERASE INCREASED [None]
  - BACTERIAL PYELONEPHRITIS [None]
  - BLOOD CREATININE INCREASED [None]
  - BLOOD UREA INCREASED [None]
  - ESCHERICHIA INFECTION [None]
  - FLUID REPLACEMENT [None]
  - HAEMATURIA [None]
  - MICTURITION URGENCY [None]
  - RENAL FAILURE ACUTE [None]
  - TRANSAMINASES INCREASED [None]
